FAERS Safety Report 16134456 (Version 1)
Quarter: 2019Q1

REPORT INFORMATION
  Report Type: Spontaneous
  Country: CA (occurrence: CA)
  Receive Date: 20190329
  Receipt Date: 20190329
  Transmission Date: 20190418
  Serious: Yes (Other)
  Sender: FDA-Public Use
  Company Number: PHHY2019CA066017

PATIENT

DRUGS (5)
  1. ETOPOSIDE. [Suspect]
     Active Substance: ETOPOSIDE
     Indication: GERM CELL CANCER METASTATIC
     Dosage: UNK UNK, CYCLIC
     Route: 065
  2. IFOSFAMIDE. [Suspect]
     Active Substance: IFOSFAMIDE
     Indication: GERM CELL CANCER METASTATIC
     Dosage: UNK UNK, CYCLIC
     Route: 065
  3. BLEOMYCIN [Suspect]
     Active Substance: BLEOMYCIN SULFATE
     Indication: GERM CELL CANCER METASTATIC
     Dosage: UNK UNK, CYCLIC
     Route: 065
  4. PACLITAXEL. [Suspect]
     Active Substance: PACLITAXEL
     Indication: GERM CELL CANCER METASTATIC
     Dosage: UNK UNK, CYCLIC
     Route: 065
  5. CISPLATIN. [Suspect]
     Active Substance: CISPLATIN
     Indication: GERM CELL CANCER METASTATIC
     Dosage: UNK UNK, CYCLIC
     Route: 065

REACTIONS (2)
  - Product use in unapproved indication [Unknown]
  - Neuropsychiatric symptoms [Unknown]
